FAERS Safety Report 8986417 (Version 2)
Quarter: 2017Q4

REPORT INFORMATION
  Report Type: Spontaneous
  Country: IT (occurrence: IT)
  Receive Date: 20121227
  Receipt Date: 20171112
  Transmission Date: 20180321
  Serious: Yes (Other)
  Sender: FDA-Public Use
  Company Number: IT-TEVA-376723ISR

PATIENT
  Age: 21 Year
  Sex: Female

DRUGS (2)
  1. FLUOXETINE [Suspect]
     Active Substance: FLUOXETINE HYDROCHLORIDE
     Dosage: 20 MILLIGRAM DAILY; INCREASING DOSAGE UP TO 20MG DAILY
     Route: 065
  2. ARIPIPRAZOLE. [Suspect]
     Active Substance: ARIPIPRAZOLE
     Indication: TOURETTE^S DISORDER
     Dosage: 7.5 MILLIGRAM DAILY; INCREASING DOSAGE UP TO 7.5MG DAILY.

REACTIONS (3)
  - Drug interaction [Recovered/Resolved]
  - Drug level increased [Recovered/Resolved]
  - Oculogyric crisis [Recovered/Resolved]
